FAERS Safety Report 6797401-3 (Version None)
Quarter: 2010Q2

REPORT INFORMATION
  Report Type: 
  Country: None (occurrence: None)
  Receive Date: 20100622
  Receipt Date: 20100616
  Transmission Date: 20101027
  Serious: Yes (Hospitalization)
  Sender: FDA-Public Use
  Company Number: 2010SP014657

PATIENT
  Age: 51 Year
  Sex: Female
  Weight: 61 kg

DRUGS (7)
  1. REBETOL [Suspect]
     Indication: HEPATITIS C
     Dosage: 800 MG; QD; PO
     Route: 048
     Dates: start: 20100205, end: 20100225
  2. INTERFERON [Suspect]
     Indication: HEPATITIS C
     Dosage: 3 MIU; BID; INDRP
     Route: 041
     Dates: start: 20100205, end: 20100225
  3. DISOPYRAMIDE [Concomitant]
  4. AMOXAN [Concomitant]
  5. CELLKAM [Concomitant]
  6. PZC [Concomitant]
  7. STOBRUN TAIYO [Concomitant]

REACTIONS (4)
  - HAEMOLYTIC ANAEMIA [None]
  - PLATELET COUNT DECREASED [None]
  - PYREXIA [None]
  - RENAL TUBULAR NECROSIS [None]
